FAERS Safety Report 17452998 (Version 3)
Quarter: 2020Q1

REPORT INFORMATION
  Report Type: Report from Study
  Country: GB (occurrence: GB)
  Receive Date: 20200224
  Receipt Date: 20200311
  Transmission Date: 20200409
  Serious: Yes (Other)
  Sender: FDA-Public Use
  Company Number: NVSC2020GB045606

PATIENT
  Age: 74 Year
  Sex: Female

DRUGS (1)
  1. KISQALI [Suspect]
     Active Substance: RIBOCICLIB
     Indication: BREAST CANCER METASTATIC
     Dosage: 600 MG, QD
     Route: 048
     Dates: start: 20200207

REACTIONS (11)
  - Musculoskeletal pain [Recovered/Resolved]
  - Head discomfort [Recovered/Resolved]
  - Sinus bradycardia [Unknown]
  - Electrocardiogram QRS complex prolonged [Not Recovered/Not Resolved]
  - Neck pain [Recovered/Resolved]
  - Left ventricular hypertrophy [Not Recovered/Not Resolved]
  - Electrocardiogram QT prolonged [Unknown]
  - Hot flush [Not Recovered/Not Resolved]
  - Pain [Recovered/Resolved]
  - Musculoskeletal chest pain [Recovered/Resolved]
  - Alopecia [Not Recovered/Not Resolved]

NARRATIVE: CASE EVENT DATE: 20200216
